FAERS Safety Report 15337190 (Version 3)
Quarter: 2019Q2

REPORT INFORMATION
  Report Type: Spontaneous
  Country: US (occurrence: US)
  Receive Date: 20180831
  Receipt Date: 20190529
  Transmission Date: 20190711
  Serious: Yes (Other)
  Sender: FDA-Public Use
  Company Number: US-TEVA-2018-US-948821

PATIENT
  Sex: Female

DRUGS (1)
  1. CINQAIR [Suspect]
     Active Substance: RESLIZUMAB
     Route: 042

REACTIONS (6)
  - Eosinophilia [Unknown]
  - Chest pain [Unknown]
  - Cough [Unknown]
  - Wheezing [Unknown]
  - Pruritus [Unknown]
  - Erythema [Unknown]
